FAERS Safety Report 8490674 (Version 2)
Quarter: 2013Q4

REPORT INFORMATION
  Report Type: Report from Study
  Country: MX (occurrence: MX)
  Receive Date: 20120403
  Receipt Date: 20131101
  Transmission Date: 20140711
  Serious: Yes (Other)
  Sender: FDA-Public Use
  Company Number: PHHY2012MX027359

PATIENT
  Age: 73 Year
  Sex: Female

DRUGS (8)
  1. ACLASTA [Suspect]
     Indication: OSTEOPOROSIS
     Dosage: 5 MG/100ML,
     Route: 042
  2. ACLASTA [Suspect]
     Dosage: 5 MG/100ML
     Route: 042
  3. ACLASTA [Suspect]
     Dosage: 5 MG/ 100 ML, ONCE A YEAR
     Route: 042
     Dates: start: 20090313
  4. LOSARTAN [Concomitant]
     Indication: BLOOD PRESSURE DECREASED
     Dosage: 2 TABLETS PER DAY
     Dates: start: 2011
  5. NORFENON [Concomitant]
     Indication: TACHYCARDIA
     Dosage: 2 TABLETS PER DAY
     Dates: start: 2004
  6. NORFENON [Concomitant]
     Indication: ARRHYTHMIA
  7. CITRACAL [Concomitant]
     Indication: OSTEOPOROSIS
     Dosage: 2 TABLETS PER DAY
     Dates: start: 2011
  8. MULTIVITAMIN [Concomitant]
     Dosage: UNK UKN, ONCE/SINGLE

REACTIONS (8)
  - Fall [Unknown]
  - Cholelithiasis [Unknown]
  - Colitis [Unknown]
  - Gait disturbance [Unknown]
  - Balance disorder [Unknown]
  - Depression [Unknown]
  - Nausea [Unknown]
  - Dizziness [Unknown]
